FAERS Safety Report 13402626 (Version 3)
Quarter: 2017Q2

REPORT INFORMATION
  Report Type: Report from Study
  Country: None (occurrence: ZA)
  Receive Date: 20170404
  Receipt Date: 20170504
  Transmission Date: 20170830
  Serious: Yes (Hospitalization, Other)
  Sender: FDA-Public Use
  Company Number: ZA-ABBVIE-17P-143-1922198-00

PATIENT
  Sex: Male
  Weight: 90 kg

DRUGS (2)
  1. HUMIRA [Suspect]
     Active Substance: ADALIMUMAB
     Indication: RHEUMATOID ARTHRITIS
     Route: 058
  2. CELEBREX [Concomitant]
     Active Substance: CELECOXIB
     Indication: PRODUCT USED FOR UNKNOWN INDICATION
     Route: 065

REACTIONS (7)
  - Atrial fibrillation [Unknown]
  - Rectal cancer [Not Recovered/Not Resolved]
  - Proctectomy [Unknown]
  - Joint arthroplasty [Unknown]
  - Ileostomy [Unknown]
  - Myocardial infarction [Not Recovered/Not Resolved]
  - Tumour excision [Unknown]
